FAERS Safety Report 23458073 (Version 1)
Quarter: 2024Q1

REPORT INFORMATION
  Report Type: Spontaneous
  Country: CN (occurrence: CN)
  Receive Date: 20240130
  Receipt Date: 20240130
  Transmission Date: 20240410
  Serious: Yes (Other)
  Sender: FDA-Public Use
  Company Number: CN-NAPPMUNDI-GBR-2024-0113866

PATIENT
  Age: 69 Year
  Sex: Female

DRUGS (5)
  1. OXYCODONE HYDROCHLORIDE [Suspect]
     Active Substance: OXYCODONE HYDROCHLORIDE
     Indication: Cancer pain
     Dosage: 10 MILLIGRAM, Q12H
     Route: 065
     Dates: start: 2023
  2. OXYCODONE HYDROCHLORIDE [Suspect]
     Active Substance: OXYCODONE HYDROCHLORIDE
     Dosage: 20 MILLIGRAM, BID
     Route: 048
     Dates: start: 20231224, end: 20231227
  3. GABAPENTIN [Suspect]
     Active Substance: GABAPENTIN
     Indication: Analgesic therapy
     Dosage: 0.3 GRAM, TID
     Route: 065
     Dates: start: 20231224
  4. NIFEDIPINE [Concomitant]
     Active Substance: NIFEDIPINE
     Indication: Hypertension
     Dosage: 30 MILLIGRAM, QD
     Route: 048
  5. METHYLPREDNISOLONE [Concomitant]
     Active Substance: METHYLPREDNISOLONE
     Indication: Sjogren^s syndrome
     Dosage: 4 MILLIGRAM, QD
     Route: 048

REACTIONS (16)
  - Arrhythmia [Unknown]
  - Cerebral infarction [Unknown]
  - Overdose [Unknown]
  - Toxicity to various agents [Recovering/Resolving]
  - Rhinitis [Unknown]
  - Headache [Unknown]
  - Neck pain [Unknown]
  - Poor quality sleep [Unknown]
  - Muscular weakness [Unknown]
  - Pyrexia [Unknown]
  - Mental disorder [Unknown]
  - Lethargy [Unknown]
  - Pupillary disorder [Unknown]
  - Pupillary reflex impaired [Unknown]
  - Productive cough [Unknown]
  - Breath sounds abnormal [Unknown]

NARRATIVE: CASE EVENT DATE: 20230101
